FAERS Safety Report 6317236-5 (Version None)
Quarter: 2009Q3

REPORT INFORMATION
  Report Type: 
  Country: None (occurrence: None)
  Receive Date: 20090819
  Receipt Date: 20090806
  Transmission Date: 20100115
  Serious: Yes (Other)
  Sender: FDA-Public Use
  Company Number: 8049865

PATIENT

DRUGS (1)
  1. KEPPRA [Suspect]
     Dosage: 1000 MG 2/D PO
     Route: 048

REACTIONS (1)
  - THROMBOCYTOPENIA [None]
